FAERS Safety Report 11858222 (Version 1)
Quarter: 2015Q4

REPORT INFORMATION
  Report Type: Spontaneous
  Country: US (occurrence: US)
  Receive Date: 20151222
  Receipt Date: 20151222
  Transmission Date: 20160305
  Serious: Yes (Other)
  Sender: FDA-Public Use
  Company Number: US-TEVA-619381USA

PATIENT
  Age: 29 Year
  Sex: Female

DRUGS (3)
  1. SALMETEROL, FLUTICASONE PROPIONATE [Suspect]
     Active Substance: FLUTICASONE PROPIONATE\SALMETEROL XINAFOATE
     Indication: ASTHMA
     Dosage: 50 MCG SALMETEROL AND 500 MCG FLUTICASONE ONE PUFF TWICE A DAY
     Route: 055
  2. PREDNISONE. [Suspect]
     Active Substance: PREDNISONE
     Indication: ASTHMA
     Route: 048
  3. NEFAZODONE [Suspect]
     Active Substance: NEFAZODONE
     Indication: ASTHMA
     Route: 055

REACTIONS (2)
  - Hypogammaglobulinaemia [Recovering/Resolving]
  - Adrenal suppression [Recovering/Resolving]
